FAERS Safety Report 12037605 (Version 18)
Quarter: 2017Q4

REPORT INFORMATION
  Report Type: Report from Study
  Country: CA (occurrence: CA)
  Receive Date: 20160208
  Receipt Date: 20171207
  Transmission Date: 20180320
  Serious: Yes (Death, Hospitalization, Other)
  Sender: FDA-Public Use
  Company Number: CA-ROCHE-1457812

PATIENT
  Age: 73 Year
  Sex: Female
  Weight: 86 kg

DRUGS (20)
  1. SPIRIVA [Concomitant]
     Active Substance: TIOTROPIUM BROMIDE MONOHYDRATE
  2. TYLENOL [Concomitant]
     Active Substance: ACETAMINOPHEN
     Indication: PREMEDICATION
     Route: 048
     Dates: start: 20140825
  3. VALSARTAN. [Concomitant]
     Active Substance: VALSARTAN
     Route: 065
  4. BENADRYL [Concomitant]
     Active Substance: DIPHENHYDRAMINE HYDROCHLORIDE
     Indication: PREMEDICATION
     Route: 048
     Dates: start: 20140825
  5. ACETAMINOPHEN. [Concomitant]
     Active Substance: ACETAMINOPHEN
     Route: 065
  6. RITUXAN [Suspect]
     Active Substance: RITUXIMAB
     Indication: RHEUMATOID ARTHRITIS
     Dosage: LAST DOSE: 16/FEB/2016
     Route: 042
     Dates: start: 20140825, end: 20170616
  7. PREDNISONE. [Suspect]
     Active Substance: PREDNISONE
     Indication: PRODUCT USED FOR UNKNOWN INDICATION
     Route: 065
  8. LACTULOSE. [Concomitant]
     Active Substance: LACTULOSE
  9. CYCLOBENZAPRINE. [Concomitant]
     Active Substance: CYCLOBENZAPRINE
  10. SOLU-MEDROL [Concomitant]
     Active Substance: METHYLPREDNISOLONE SODIUM SUCCINATE
     Indication: PREMEDICATION
     Route: 042
     Dates: start: 20140825
  11. GABAPENTIN. [Concomitant]
     Active Substance: GABAPENTIN
  12. BUTRANS [Concomitant]
     Active Substance: BUPRENORPHINE
     Route: 062
  13. VENLAFAXINE [Concomitant]
     Active Substance: VENLAFAXINE HYDROCHLORIDE
  14. ZOPLICONE [Concomitant]
     Active Substance: ZOPICLONE
  15. MORPHINE [Concomitant]
     Active Substance: MORPHINE
  16. SYMBICORT [Concomitant]
     Active Substance: BUDESONIDE\FORMOTEROL FUMARATE DIHYDRATE
     Route: 065
  17. AMLODIPINE [Concomitant]
     Active Substance: AMLODIPINE BESYLATE
     Route: 065
  18. METHOCARBAMOL. [Concomitant]
     Active Substance: METHOCARBAMOL
     Route: 065
  19. FENTANYL. [Concomitant]
     Active Substance: FENTANYL
     Route: 065
  20. SENNOSIDES. [Concomitant]
     Active Substance: SENNOSIDES

REACTIONS (37)
  - Back injury [Unknown]
  - Cough [Unknown]
  - Hyperhidrosis [Unknown]
  - Accident [Unknown]
  - Memory impairment [Not Recovered/Not Resolved]
  - Productive cough [Not Recovered/Not Resolved]
  - Death [Fatal]
  - Hyperaesthesia [Unknown]
  - Malaise [Unknown]
  - Blood pressure fluctuation [Unknown]
  - Anxiety [Unknown]
  - Dyspnoea [Recovering/Resolving]
  - Staphylococcal skin infection [Recovered/Resolved]
  - Nausea [Recovered/Resolved]
  - Haematoma [Unknown]
  - Oxygen saturation decreased [Unknown]
  - Fungal infection [Recovered/Resolved]
  - Drug ineffective [Unknown]
  - Dizziness [Recovered/Resolved]
  - Fall [Unknown]
  - Oxygen saturation decreased [Unknown]
  - Laceration [Recovering/Resolving]
  - Headache [Unknown]
  - Hypotension [Unknown]
  - Feeling hot [Unknown]
  - Dyspepsia [Recovered/Resolved]
  - Lung infection [Not Recovered/Not Resolved]
  - Heart rate increased [Not Recovered/Not Resolved]
  - Contusion [Unknown]
  - Ear discomfort [Unknown]
  - Wheezing [Not Recovered/Not Resolved]
  - Chronic obstructive pulmonary disease [Unknown]
  - Heart rate increased [Unknown]
  - Panic attack [Recovering/Resolving]
  - Contusion [Unknown]
  - Pyrexia [Not Recovered/Not Resolved]
  - Pyrexia [Not Recovered/Not Resolved]

NARRATIVE: CASE EVENT DATE: 20140825
